FAERS Safety Report 9370344 (Version 1)
Quarter: 2013Q2

REPORT INFORMATION
  Report Type: Spontaneous
  Country: BR (occurrence: BR)
  Receive Date: 20130626
  Receipt Date: 20130626
  Transmission Date: 20140414
  Serious: Yes (Disabling)
  Sender: FDA-Public Use
  Company Number: BR-B.I. PHARMACEUTICALS,INC./RIDGEFIELD-2013-BR-00758BR

PATIENT
  Age: 51 Year
  Sex: Female
  Weight: 77 kg

DRUGS (6)
  1. TRAYENTA [Suspect]
     Indication: DIABETES MELLITUS
     Dosage: 5 MG
     Route: 048
     Dates: start: 201305, end: 201306
  2. INSULIN [Concomitant]
     Indication: DIABETES MELLITUS
  3. PANTOPRAZOL [Concomitant]
  4. FOLIC ACID [Concomitant]
  5. B COMPLEX [Concomitant]
  6. PROPRANOLOL [Concomitant]
     Indication: VARICES OESOPHAGEAL

REACTIONS (2)
  - Dyspnoea [Recovered/Resolved]
  - Hypersensitivity [Recovered/Resolved]
